FAERS Safety Report 7656957-9 (Version None)
Quarter: 2011Q3

REPORT INFORMATION
  Report Type: 
  Country: None (occurrence: None)
  Receive Date: 20110802
  Receipt Date: 20110720
  Transmission Date: 20111222
  Serious: Yes (Hospitalization)
  Sender: FDA-Public Use
  Company Number: MPS1-1000543

PATIENT
  Age: 21 Year
  Sex: Male
  Weight: 57 kg

DRUGS (1)
  1. ALDURAZYME [Suspect]
     Indication: MUCOPOLYSACCHARIDOSIS I
     Dosage: 100 U/KG, QW, INTRAVENOUS; 78.9 U/KG, EVERY 5 DAYS, INTRAVENOUS
     Route: 042

REACTIONS (4)
  - POLYNEUROPATHY [None]
  - MACROGLOSSIA [None]
  - PHARYNGEAL OEDEMA [None]
  - LUMBAR SPINAL STENOSIS [None]
